FAERS Safety Report 12313034 (Version 1)
Quarter: 2016Q2

REPORT INFORMATION
  Report Type: Spontaneous
  Country: US (occurrence: US)
  Receive Date: 20160428
  Receipt Date: 20160428
  Transmission Date: 20160815
  Serious: No
  Sender: FDA-Public Use
  Company Number: US-BAYER-2016-077605

PATIENT
  Age: 57 Year
  Sex: Female
  Weight: 77.98 kg

DRUGS (2)
  1. CLARITIN [Suspect]
     Active Substance: LORATADINE
     Indication: SEASONAL ALLERGY
     Dosage: 1 DF, QD
     Route: 048
  2. CLARITIN [Suspect]
     Active Substance: LORATADINE
     Indication: SEASONAL ALLERGY
     Dosage: 2 OR 3 TABLETS, UNK
     Route: 048

REACTIONS (2)
  - Rhinorrhoea [None]
  - Product use issue [None]

NARRATIVE: CASE EVENT DATE: 20160419
